FAERS Safety Report 23774662 (Version 1)
Quarter: 2024Q2

REPORT INFORMATION
  Report Type: Spontaneous
  Country: US (occurrence: None)
  Receive Date: 20240422
  Receipt Date: 20240422
  Transmission Date: 20240716
  Serious: No
  Sender: FDA-Public Use
  Company Number: None

PATIENT
  Age: 24 Year
  Sex: Female
  Weight: 47.25 kg

DRUGS (8)
  1. ISOTRETINOIN [Suspect]
     Active Substance: ISOTRETINOIN
     Indication: Acne
     Dosage: FREQUENCY : TWICE A DAY;?
     Route: 048
     Dates: start: 20231001, end: 20231007
  2. SPIRONOLACTONE [Concomitant]
     Active Substance: SPIRONOLACTONE
  3. PROPRANOLOL [Concomitant]
     Active Substance: PROPRANOLOL HYDROCHLORIDE
  4. LAMOTRIGINE [Concomitant]
     Active Substance: LAMOTRIGINE
  5. Seroquel instant release [Concomitant]
  6. MIRTAZAPINE [Concomitant]
     Active Substance: MIRTAZAPINE
  7. NAPROXEN [Concomitant]
     Active Substance: NAPROXEN
  8. Adult daily vitamin gummies [Concomitant]

REACTIONS (7)
  - Hypertrichosis [None]
  - Hair growth rate abnormal [None]
  - Alopecia [None]
  - Chapped lips [None]
  - Ingrown hair [None]
  - Hair texture abnormal [None]
  - Acne [None]

NARRATIVE: CASE EVENT DATE: 20231001
